FAERS Safety Report 9329687 (Version 1)
Quarter: 2013Q2

REPORT INFORMATION
  Report Type: Spontaneous
  Country: US (occurrence: US)
  Receive Date: 20130604
  Receipt Date: 20130604
  Transmission Date: 20140414
  Serious: Yes (Other)
  Sender: FDA-Public Use
  Company Number: US-SANOFI-AVENTIS-2013SA032718

PATIENT
  Age: 22 Year
  Sex: Female

DRUGS (1)
  1. LANTUS [Suspect]
     Indication: PRODUCT USED FOR UNKNOWN INDICATION
     Dosage: 11 UNIT IN THE MORNING DOSE:11 UNIT(S)
     Route: 065

REACTIONS (2)
  - Hypoglycaemia [Unknown]
  - Blood glucose increased [Unknown]
